FAERS Safety Report 5754170-3 (Version None)
Quarter: 2008Q2

REPORT INFORMATION
  Report Type: 
  Country: None (occurrence: None)
  Receive Date: 20080527
  Receipt Date: 20080507
  Transmission Date: 20081010
  Serious: Yes (Other)
  Sender: FDA-Public Use
  Company Number: GXKR2008NL04219

PATIENT
  Age: 52 Year
  Sex: Female

DRUGS (2)
  1. FLOXACILLIN SODIUM [Suspect]
     Indication: STAPHYLOCOCCAL INFECTION
     Dosage: HIGH DOSE
  2. ACETAMINOPHEN [Suspect]
     Indication: PAIN

REACTIONS (6)
  - BLOOD BICARBONATE INCREASED [None]
  - BLOOD CHLORIDE INCREASED [None]
  - BLOOD LACTIC ACID INCREASED [None]
  - METABOLIC ACIDOSIS [None]
  - METASTASIS [None]
  - RESPIRATORY DISTRESS [None]
